FAERS Safety Report 9054241 (Version 2)
Quarter: 2013Q2

REPORT INFORMATION
  Report Type: Spontaneous
  Country: US (occurrence: US)
  Receive Date: 20130208
  Receipt Date: 20130404
  Transmission Date: 20140414
  Serious: Yes (Death, Hospitalization)
  Sender: FDA-Public Use
  Company Number: US-GLAXOSMITHKLINE-A1010400A

PATIENT
  Age: 87 Year
  Sex: Male

DRUGS (8)
  1. COREG CR [Suspect]
     Indication: HYPERTENSION
     Dosage: 10MG PER DAY
     Route: 048
  2. LIPITOR [Concomitant]
  3. ALLOPURINOL [Concomitant]
  4. BABY ASPIRIN [Concomitant]
  5. NIACIN [Concomitant]
  6. IRON TABLET [Concomitant]
  7. APPETITE STIMULANT [Concomitant]
  8. RITUXAN [Concomitant]

REACTIONS (5)
  - Death [Fatal]
  - Chills [Unknown]
  - Skin discolouration [Unknown]
  - Heart rate irregular [Unknown]
  - Feeling hot [Unknown]
